FAERS Safety Report 13350975 (Version 3)
Quarter: 2017Q2

REPORT INFORMATION
  Report Type: Spontaneous
  Country: US (occurrence: US)
  Receive Date: 20170320
  Receipt Date: 20170613
  Transmission Date: 20170830
  Serious: Yes (Hospitalization, Other)
  Sender: FDA-Public Use
  Company Number: US-PFIZER INC-2017118933

PATIENT
  Age: 63 Year
  Sex: Female

DRUGS (3)
  1. XELJANZ XR [Suspect]
     Active Substance: TOFACITINIB CITRATE
     Indication: RHEUMATOID ARTHRITIS
     Dosage: 11 MG, UNK
     Dates: end: 20170201
  2. XELJANZ XR [Suspect]
     Active Substance: TOFACITINIB CITRATE
     Dosage: 10 MG, 1X/DAY
  3. PREDNISONE. [Concomitant]
     Active Substance: PREDNISONE
     Dosage: UNK UNK, AS NEEDED

REACTIONS (6)
  - Influenza like illness [Recovered/Resolved]
  - Abdominal pain upper [Unknown]
  - Pain [Recovered/Resolved]
  - Vomiting [Recovered/Resolved]
  - Pneumonia [Unknown]
  - Lung infection [Unknown]

NARRATIVE: CASE EVENT DATE: 201701
